FAERS Safety Report 24033730 (Version 1)
Quarter: 2024Q3

REPORT INFORMATION
  Report Type: Spontaneous
  Country: US (occurrence: US)
  Receive Date: 20240701
  Receipt Date: 20240701
  Transmission Date: 20241016
  Serious: Yes (Death, Life-Threatening, Hospitalization)
  Sender: AMGEN
  Company Number: US-AMGEN-USASP2024122667

PATIENT
  Age: 44 Year
  Sex: Female

DRUGS (3)
  1. RITUXIMAB [Suspect]
     Active Substance: RITUXIMAB
     Indication: Interstitial lung disease
     Dosage: UNK
     Route: 065
  2. MYCOPHENOLIC ACID [Concomitant]
     Active Substance: MYCOPHENOLIC ACID
     Indication: Interstitial lung disease
     Dosage: UNK
     Route: 065
  3. CYCLOPHOSPHAMIDE [Concomitant]
     Active Substance: CYCLOPHOSPHAMIDE
     Indication: Interstitial lung disease
     Dosage: UNK
     Route: 065

REACTIONS (9)
  - Hypercapnia [Fatal]
  - Hypoxia [Fatal]
  - Diffuse alveolar damage [Fatal]
  - Interstitial lung disease [Fatal]
  - Respiratory failure [Unknown]
  - Pneumomediastinum [Unknown]
  - Pneumothorax [Unknown]
  - Drug ineffective for unapproved indication [Unknown]
  - Off label use [Unknown]
